FAERS Safety Report 10510656 (Version 1)
Quarter: 2014Q3

REPORT INFORMATION
  Report Type: Spontaneous
  Country: US (occurrence: None)
  Receive Date: 20140919
  Receipt Date: 20140919
  Transmission Date: 20150326
  Serious: Yes (Disabling)
  Sender: FDA-Public Use
  Company Number: A-US2014-103993

PATIENT
  Age: 69 Year
  Sex: Male

DRUGS (1)
  1. VALCHLOR [Suspect]
     Active Substance: MECHLORETHAMINE
     Indication: MYCOSIS FUNGOIDES
     Route: 061
     Dates: start: 20140708, end: 20140723

REACTIONS (5)
  - Rash [None]
  - Blister [None]
  - Swelling [None]
  - Pain [None]
  - Erythema [None]

NARRATIVE: CASE EVENT DATE: 20140721
